FAERS Safety Report 11945244 (Version 1)
Quarter: 2016Q1

REPORT INFORMATION
  Report Type: Report from Study
  Country: US (occurrence: US)
  Receive Date: 20160125
  Receipt Date: 20160125
  Transmission Date: 20160526
  Serious: Yes (Death, Hospitalization, Other)
  Sender: FDA-Public Use
  Company Number: US-BAYER-2014-100009

PATIENT
  Age: 83 Year
  Sex: Female
  Weight: 72.56 kg

DRUGS (8)
  1. ADEMPAS [Suspect]
     Active Substance: RIOCIGUAT
     Indication: PULMONARY HYPERTENSION
     Dosage: 1.5 MG, TID
     Route: 048
  2. ADEMPAS [Suspect]
     Active Substance: RIOCIGUAT
     Indication: PULMONARY HYPERTENSION
     Dosage: 1.5 MG, TID
     Route: 048
  3. ADEMPAS [Suspect]
     Active Substance: RIOCIGUAT
     Indication: PULMONARY HYPERTENSION
     Dosage: 0.5 MG, TID ^THRICE DAILY^
     Route: 048
     Dates: start: 20140619
  4. ADEMPAS [Suspect]
     Active Substance: RIOCIGUAT
     Indication: PULMONARY HYPERTENSION
     Dosage: 1.5 MG, TID
     Route: 048
  5. ADEMPAS [Suspect]
     Active Substance: RIOCIGUAT
     Indication: PULMONARY HYPERTENSION
     Dosage: 2 MG, TID
     Route: 048
  6. ADEMPAS [Suspect]
     Active Substance: RIOCIGUAT
     Indication: PULMONARY HYPERTENSION
     Dosage: 1.0 MG, TID
     Route: 048
  7. TYVASO [Suspect]
     Active Substance: TREPROSTINIL
  8. ADEMPAS [Suspect]
     Active Substance: RIOCIGUAT
     Indication: PULMONARY HYPERTENSION
     Dosage: 1.5 MG, TID
     Route: 048

REACTIONS (31)
  - Death [Fatal]
  - Atrial fibrillation [Unknown]
  - Oedema peripheral [Unknown]
  - Asthenia [None]
  - Cerebrovascular accident [Unknown]
  - Dyspnoea [None]
  - Back pain [None]
  - Dyspnoea [Unknown]
  - Gastritis [None]
  - Nausea [None]
  - Angina pectoris [Unknown]
  - Chest pain [Recovered/Resolved]
  - Oral pain [Unknown]
  - Throat irritation [Unknown]
  - Hypotension [Unknown]
  - Asthenia [Unknown]
  - Oedema peripheral [None]
  - Chest discomfort [None]
  - Chest discomfort [Unknown]
  - Weight decreased [None]
  - Dyspepsia [None]
  - Cough [Unknown]
  - Fatigue [Unknown]
  - Oxygen supplementation [None]
  - Oral discomfort [Unknown]
  - Chest pain [None]
  - Balance disorder [Unknown]
  - Dizziness [Unknown]
  - Dizziness [None]
  - Hypotension [None]
  - Decreased appetite [None]

NARRATIVE: CASE EVENT DATE: 20150625
